FAERS Safety Report 8872096 (Version 1)
Quarter: 2012Q4

REPORT INFORMATION
  Report Type: 
  Country: JP (occurrence: JP)
  Receive Date: 20121029
  Receipt Date: 20121029
  Transmission Date: 20130627
  Serious: Yes (Life-Threatening, Hospitalization, Other)
  Sender: FDA-Public Use
  Company Number: JP-AMGEN-JPNSP2012062074

PATIENT
  Age: 22 Year
  Sex: Female
  Weight: 51 kg

DRUGS (4)
  1. ENBREL [Suspect]
     Indication: RHEUMATOID ARTHRITIS
     Dosage: 50 mg, weekly
     Route: 058
     Dates: start: 201208, end: 20120916
  2. PARIET [Concomitant]
     Indication: PROPHYLAXIS AGAINST GASTROINTESTINAL ULCER
     Dosage: 10 mg, 1x/day
     Route: 048
     Dates: end: 20120919
  3. PROGRAF [Concomitant]
     Indication: RHEUMATOID ARTHRITIS
     Dosage: 1 mg, 2x/day
     Route: 048
     Dates: start: 201112, end: 20120919
  4. FLOMOX [Concomitant]
     Indication: NASOPHARYNGITIS
     Dosage: 100 mg, 3x/day
     Route: 048
     Dates: start: 20120916

REACTIONS (3)
  - Malaise [Recovered/Resolved]
  - Pyrexia [Recovered/Resolved]
  - Interstitial lung disease [Recovered/Resolved]
